FAERS Safety Report 15620909 (Version 1)
Quarter: 2018Q4

REPORT INFORMATION
  Report Type: Spontaneous
  Country: GB (occurrence: GB)
  Receive Date: 20181115
  Receipt Date: 20181115
  Transmission Date: 20190205
  Serious: Yes (Other)
  Sender: FDA-Public Use
  Company Number: GB-TEVA-2018-GB-975546

PATIENT
  Sex: Female

DRUGS (2)
  1. MORPHINE [Suspect]
     Active Substance: MORPHINE
     Indication: PROCEDURAL PAIN
     Dosage: IN TOTAL
     Route: 065
  2. NALOXONE [Concomitant]
     Active Substance: NALOXONE
     Indication: REVERSAL OF OPIATE ACTIVITY
     Route: 065

REACTIONS (2)
  - Respiratory depression [Recovered/Resolved]
  - Loss of consciousness [Recovered/Resolved]
